FAERS Safety Report 15882011 (Version 3)
Quarter: 2019Q2

REPORT INFORMATION
  Report Type: Report from Study
  Country: CA (occurrence: CA)
  Receive Date: 20190128
  Receipt Date: 20190625
  Transmission Date: 20190711
  Serious: Yes (Death, Other)
  Sender: FDA-Public Use
  Company Number: CA-PFIZER INC-2019034484

PATIENT
  Age: 72 Year
  Sex: Female
  Weight: 47 kg

DRUGS (12)
  1. AFINITOR [Suspect]
     Active Substance: EVEROLIMUS
     Dosage: 5 MG, ALTERNATE DAY
     Route: 048
     Dates: start: 2016, end: 2016
  2. SANDOSTATIN [Suspect]
     Active Substance: OCTREOTIDE ACETATE
     Dosage: 40 MG, MONTHLY
     Route: 030
     Dates: start: 20110902, end: 20160722
  3. SANDOSTATIN [Suspect]
     Active Substance: OCTREOTIDE ACETATE
     Dosage: 30 MG, MONTHLY
     Route: 030
     Dates: start: 20161019
  4. CALCIUM [Concomitant]
     Active Substance: CALCIUM
     Dosage: UNK
     Route: 065
  5. SUTENT [Suspect]
     Active Substance: SUNITINIB MALATE
     Dosage: 12.5 MG, 1X/DAY
     Route: 065
     Dates: start: 20161108
  6. SUTENT [Suspect]
     Active Substance: SUNITINIB MALATE
     Dosage: 25 MG, 1X/DAY
     Route: 065
     Dates: start: 20161108
  7. METOPROLOL. [Suspect]
     Active Substance: METOPROLOL
     Dosage: UNK
     Route: 065
  8. SANDOSTATIN [Suspect]
     Active Substance: OCTREOTIDE ACETATE
     Indication: NEUROENDOCRINE TUMOUR
     Dosage: 30 MG, MONTHLY
     Route: 030
     Dates: start: 20110707, end: 20110804
  9. LASIX [Concomitant]
     Active Substance: FUROSEMIDE
     Dosage: UNK
     Route: 065
  10. ALDACTONE [Concomitant]
     Active Substance: SPIRONOLACTONE
     Dosage: UNK
     Route: 065
  11. SUNITINIB MALATE. [Suspect]
     Active Substance: SUNITINIB MALATE
     Dosage: UNK
     Route: 065
  12. AFINITOR [Suspect]
     Active Substance: EVEROLIMUS
     Indication: PANCREATIC NEUROENDOCRINE TUMOUR
     Dosage: 10 MG, 1X/DAY
     Route: 048
     Dates: start: 201601, end: 2016

REACTIONS (43)
  - Body temperature decreased [Unknown]
  - Joint swelling [Unknown]
  - Pruritus [Unknown]
  - Sciatica [Unknown]
  - Neoplasm progression [Unknown]
  - Malaise [Unknown]
  - Pain [Unknown]
  - Peripheral swelling [Unknown]
  - Vomiting [Recovered/Resolved]
  - Inappropriate schedule of product administration [Unknown]
  - Spinal stenosis [Unknown]
  - Abdominal pain [Not Recovered/Not Resolved]
  - Depression [Unknown]
  - Dermatitis [Not Recovered/Not Resolved]
  - Gastrointestinal pain [Recovered/Resolved]
  - Death [Fatal]
  - Drug intolerance [Unknown]
  - Epistaxis [Not Recovered/Not Resolved]
  - Hypotension [Unknown]
  - Musculoskeletal pain [Unknown]
  - Rash [Recovered/Resolved]
  - Scar [Recovering/Resolving]
  - Bursitis [Unknown]
  - Lethargy [Unknown]
  - Nausea [Recovered/Resolved]
  - Alopecia [Unknown]
  - Blood pressure systolic increased [Unknown]
  - Eating disorder [Unknown]
  - Myalgia [Not Recovered/Not Resolved]
  - Second primary malignancy [Unknown]
  - Hepatic neoplasm [Unknown]
  - Asthenia [Unknown]
  - Pain of skin [Not Recovered/Not Resolved]
  - Toxicity to various agents [Unknown]
  - Back pain [Unknown]
  - Diarrhoea [Not Recovered/Not Resolved]
  - Fall [Unknown]
  - Fatigue [Recovered/Resolved]
  - Heart rate decreased [Unknown]
  - Inflammation [Unknown]
  - Pain in extremity [Not Recovered/Not Resolved]
  - Palpitations [Unknown]
  - Weight decreased [Unknown]

NARRATIVE: CASE EVENT DATE: 20141029
